FAERS Safety Report 10360555 (Version 1)
Quarter: 2014Q3

REPORT INFORMATION
  Report Type: Spontaneous
  Country: US (occurrence: None)
  Receive Date: 20140801
  Receipt Date: 20140801
  Transmission Date: 20150326
  Serious: No
  Sender: FDA-Public Use
  Company Number: None

PATIENT
  Age: 73 Year
  Sex: Female

DRUGS (15)
  1. METRONIDAZOLE? [Concomitant]
  2. PRO-BIC [Concomitant]
  3. STOOL SOFTENER [Concomitant]
     Active Substance: DOCUSATE CALCIUM
  4. FLUCONAZOLE. [Concomitant]
     Active Substance: FLUCONAZOLE
  5. CARAFATE [Concomitant]
     Active Substance: SUCRALFATE
  6. KLOR-CON [Concomitant]
     Active Substance: POTASSIUM CHLORIDE
  7. VITAMIN B12 [Concomitant]
     Active Substance: CYANOCOBALAMIN
  8. IMBRUVICA [Suspect]
     Active Substance: IBRUTINIB
     Indication: CHRONIC LYMPHOCYTIC LEUKAEMIA
     Dosage: 420MG, ONCE DAILY, MOUTH
     Route: 048
     Dates: start: 20140423
  9. DILTIAZEM [Concomitant]
     Active Substance: DILTIAZEM
  10. TYLENOL PM [Concomitant]
     Active Substance: ACETAMINOPHEN\DIPHENHYDRAMINE
  11. BONIVA [Concomitant]
     Active Substance: IBANDRONATE SODIUM
  12. SUMATRIPTAN [Concomitant]
     Active Substance: SUMATRIPTAN
  13. AMANTADINE [Concomitant]
     Active Substance: AMANTADINE
  14. DIGOXIN. [Concomitant]
     Active Substance: DIGOXIN
  15. HYDROXYZINE [Concomitant]
     Active Substance: HYDROXYZINE\HYDROXYZINE HYDROCHLORIDE

REACTIONS (1)
  - Lymphoma [None]

NARRATIVE: CASE EVENT DATE: 20140729
